FAERS Safety Report 7245378-9 (Version None)
Quarter: 2011Q1

REPORT INFORMATION
  Report Type: 
  Country: None (occurrence: None)
  Receive Date: 20110126
  Receipt Date: 20110124
  Transmission Date: 20110831
  Serious: Yes (Other)
  Sender: FDA-Public Use
  Company Number: AU-ROCHE-755131

PATIENT
  Sex: Female

DRUGS (1)
  1. ACTEMRA [Suspect]
     Indication: RHEUMATOID ARTHRITIS
     Dosage: DOSE AS REPORTED: 42 MLS OF 640 MG
     Route: 042
     Dates: start: 20101214

REACTIONS (6)
  - NAUSEA [None]
  - VOMITING [None]
  - FATIGUE [None]
  - URINARY TRACT INFECTION [None]
  - DIZZINESS [None]
  - MALAISE [None]
